FAERS Safety Report 9927408 (Version 3)
Quarter: 2014Q2

REPORT INFORMATION
  Report Type: Spontaneous
  Country: IN (occurrence: IN)
  Receive Date: 20140226
  Receipt Date: 20140423
  Transmission Date: 20141212
  Serious: Yes (Other)
  Sender: FDA-Public Use
  Company Number: PHHY2014IN019570

PATIENT
  Age: 22 Year
  Sex: Male
  Weight: 55 kg

DRUGS (4)
  1. DICLOFENAC [Suspect]
     Indication: PYREXIA
     Dosage: 50 MG, UNK
     Route: 030
  2. DICLOFENAC [Suspect]
     Indication: HEADACHE
  3. PIROXICAM [Suspect]
     Indication: HEADACHE
     Dosage: 20 MG
     Route: 030
  4. PARACETAMOL [Concomitant]
     Dosage: 650 MG, UNK

REACTIONS (4)
  - Drug hypersensitivity [Recovered/Resolved]
  - Urticaria [Recovered/Resolved]
  - Skin lesion [Recovered/Resolved]
  - Erythema [Recovered/Resolved]
